FAERS Safety Report 13527253 (Version 1)
Quarter: 2017Q2

REPORT INFORMATION
  Report Type: Spontaneous
  Country: FR (occurrence: FR)
  Receive Date: 20170509
  Receipt Date: 20170509
  Transmission Date: 20170830
  Serious: Yes (Hospitalization)
  Sender: FDA-Public Use
  Company Number: FR-PFIZER INC-2017193198

PATIENT
  Age: 88 Year
  Sex: Female

DRUGS (9)
  1. DOLIPRANE [Concomitant]
     Active Substance: ACETAMINOPHEN
     Dosage: UNK
  2. NEBIVOLOL. [Concomitant]
     Active Substance: NEBIVOLOL
     Dosage: 2 DF, WEEKLY
  3. NOVATREX NOS [Suspect]
     Active Substance: AZITHROMYCIN OR METHOTREXATE SODIUM
     Dosage: 7.5 MG, WEEKLY (3 DF ONCE WEEKLY SUNDAYS)
     Route: 048
     Dates: end: 20170326
  4. VESICARE [Concomitant]
     Active Substance: SOLIFENACIN SUCCINATE
     Dosage: UNK
  5. OMEPRAZOLE. [Concomitant]
     Active Substance: OMEPRAZOLE
     Dosage: UNK
     Dates: start: 20170328
  6. KARDEGIC [Concomitant]
     Active Substance: ASPIRIN LYSINE
     Dosage: UNK
  7. SPECIAFOLDINE [Concomitant]
     Active Substance: FOLIC ACID
     Dosage: UNK
  8. FOSINOPRIL SODIUM/HYDROCHLOROTHIAZIDE [Concomitant]
     Dosage: UNK
  9. METEOSPASMYL [Concomitant]
     Active Substance: ALVERINE CITRATE\DIMETHICONE
     Dosage: UNK
     Dates: start: 20170328

REACTIONS (5)
  - Thrombocytopenia [Recovered/Resolved]
  - General physical health deterioration [Recovered/Resolved]
  - Anaemia macrocytic [Recovering/Resolving]
  - Vitamin B12 deficiency [Recovering/Resolving]
  - Folate deficiency [Recovering/Resolving]

NARRATIVE: CASE EVENT DATE: 201703
